FAERS Safety Report 10170113 (Version 1)
Quarter: 2014Q2

REPORT INFORMATION
  Report Type: Spontaneous
  Country: CN (occurrence: CN)
  Receive Date: 20140513
  Receipt Date: 20140513
  Transmission Date: 20141212
  Serious: Yes (Other)
  Sender: FDA-Public Use
  Company Number: CN-BAXTER-2014BAX023361

PATIENT
  Age: 3 Year
  Sex: Male
  Weight: 11 kg

DRUGS (1)
  1. 20% MANNITOL INJECTION [Suspect]
     Indication: BRAIN OEDEMA
     Route: 041
     Dates: start: 20130415, end: 20130415

REACTIONS (1)
  - Rash [Recovering/Resolving]
